FAERS Safety Report 25788977 (Version 1)
Quarter: 2025Q3

REPORT INFORMATION
  Report Type: Report from Study
  Country: CA (occurrence: CA)
  Receive Date: 20250911
  Receipt Date: 20250911
  Transmission Date: 20251020
  Serious: Yes (Other)
  Sender: ACCORD
  Company Number: None

PATIENT
  Age: 69 Year
  Sex: Female
  Weight: 90 kg

DRUGS (4)
  1. METHOTREXATE [Suspect]
     Active Substance: METHOTREXATE
     Indication: Product used for unknown indication
     Route: 037
  2. PREDNISONE [Suspect]
     Active Substance: PREDNISONE
     Indication: Product used for unknown indication
  3. INFLIXIMAB [Suspect]
     Active Substance: INFLIXIMAB
     Indication: Crohn^s disease
  4. INFLIXIMAB [Suspect]
     Active Substance: INFLIXIMAB
     Indication: Crohn^s disease
     Route: 042

REACTIONS (3)
  - Crohn^s disease [Unknown]
  - Off label use [Unknown]
  - Malaise [Unknown]
